FAERS Safety Report 5276821-2 (Version None)
Quarter: 2007Q1

REPORT INFORMATION
  Report Type: 
  Country: None (occurrence: None)
  Receive Date: 20070327
  Receipt Date: 20070315
  Transmission Date: 20070707
  Serious: Yes (Other)
  Sender: FDA-Public Use
  Company Number: PHFR2007GB01062

PATIENT
  Age: 55 Year
  Sex: Male

DRUGS (1)
  1. LAMISIL [Suspect]
     Route: 065

REACTIONS (2)
  - RENAL FAILURE [None]
  - VASCULITIS [None]
